FAERS Safety Report 11748745 (Version 1)
Quarter: 2015Q4

REPORT INFORMATION
  Report Type: Report from Study
  Country: CA (occurrence: CA)
  Receive Date: 20151118
  Receipt Date: 20151118
  Transmission Date: 20160304
  Serious: Yes (Hospitalization)
  Sender: FDA-Public Use
  Company Number: CA-ROCHE-1653682

PATIENT
  Age: 80 Year
  Sex: Female

DRUGS (11)
  1. FENTANYL. [Concomitant]
     Active Substance: FENTANYL
     Route: 065
  2. ESBRIET [Suspect]
     Active Substance: PIRFENIDONE
     Route: 048
     Dates: start: 201510
  3. ESBRIET [Suspect]
     Active Substance: PIRFENIDONE
     Route: 048
     Dates: start: 201510, end: 20151106
  4. DIAZEPAM. [Concomitant]
     Active Substance: DIAZEPAM
  5. PANTOPRAZOLE [Concomitant]
     Active Substance: PANTOPRAZOLE SODIUM
  6. ESBRIET [Suspect]
     Active Substance: PIRFENIDONE
     Indication: IDIOPATHIC PULMONARY FIBROSIS
     Route: 048
     Dates: start: 20151001
  7. CITALOPRAM [Concomitant]
     Active Substance: CITALOPRAM HYDROBROMIDE
  8. COVERSYL [Concomitant]
     Active Substance: PERINDOPRIL
  9. SPIRIVA [Concomitant]
     Active Substance: TIOTROPIUM BROMIDE MONOHYDRATE
  10. ATORVASTATIN [Concomitant]
     Active Substance: ATORVASTATIN
  11. RIVAROXABAN [Concomitant]
     Active Substance: RIVAROXABAN

REACTIONS (3)
  - Nausea [Not Recovered/Not Resolved]
  - Drug intolerance [Unknown]
  - Pneumonia [Unknown]

NARRATIVE: CASE EVENT DATE: 201510
